FAERS Safety Report 25204315 (Version 2)
Quarter: 2025Q2

REPORT INFORMATION
  Report Type: Report from Study
  Country: US (occurrence: US)
  Receive Date: 20250416
  Receipt Date: 20250422
  Transmission Date: 20250717
  Serious: Yes (Hospitalization)
  Sender: JAZZ
  Company Number: US-JAZZ PHARMACEUTICALS-2025-US-009590

PATIENT
  Sex: Male
  Weight: 34.467 kg

DRUGS (1)
  1. EPIDIOLEX [Suspect]
     Active Substance: CANNABIDIOL
     Indication: Lennox-Gastaut syndrome
     Dosage: 4.5 MILLILITER, BID
     Route: 048
     Dates: start: 201812

REACTIONS (2)
  - Hospitalisation [Unknown]
  - Weight decreased [Unknown]
